FAERS Safety Report 7685119-4 (Version None)
Quarter: 2011Q3

REPORT INFORMATION
  Report Type: 
  Country: None (occurrence: None)
  Receive Date: 20110816
  Receipt Date: 20110804
  Transmission Date: 20111222
  Serious: Yes (Death, Other)
  Sender: FDA-Public Use
  Company Number: CA-BRISTOL-MYERS SQUIBB COMPANY-15967698

PATIENT
  Sex: Male

DRUGS (1)
  1. COUMADIN [Suspect]
     Dosage: 5MG TWICE DAILY WEEKLY AND 2.5MG THE OTHER 5 DAYS THEN 4MG/DAY
     Dates: start: 20040101

REACTIONS (2)
  - LOCALISED INFECTION [None]
  - BRAIN DEATH [None]
